FAERS Safety Report 11012552 (Version 1)
Quarter: 2015Q2

REPORT INFORMATION
  Report Type: Spontaneous
  Country: US (occurrence: None)
  Receive Date: 20150410
  Receipt Date: 20150410
  Transmission Date: 20150821
  Serious: Yes (Other)
  Sender: FDA-Public Use
  Company Number: None

PATIENT
  Age: 35 Year
  Sex: Female
  Weight: 78.93 kg

DRUGS (5)
  1. NITROFURANTOIN. [Suspect]
     Active Substance: NITROFURANTOIN
     Indication: URINARY TRACT INFECTION
     Dosage: 100MG/1 PILL TWICE DAILY ORAL
     Route: 048
     Dates: start: 20150303, end: 20150308
  2. PROBIOTIC [Concomitant]
     Active Substance: PROBIOTICS NOS
  3. FISH OIL [Concomitant]
     Active Substance: FISH OIL
  4. ONE A DAY WOMEN^S MULTIVITAMIN [Concomitant]
  5. MAGNESIUM [Concomitant]
     Active Substance: MAGNESIUM

REACTIONS (3)
  - Hypoaesthesia [None]
  - Pain [None]
  - Paraesthesia [None]

NARRATIVE: CASE EVENT DATE: 20150305
